FAERS Safety Report 10228559 (Version 1)
Quarter: 2014Q2

REPORT INFORMATION
  Report Type: Spontaneous
  Country: CH (occurrence: CH)
  Receive Date: 20140610
  Receipt Date: 20140610
  Transmission Date: 20141212
  Serious: Yes (Hospitalization)
  Sender: FDA-Public Use
  Company Number: CH-JNJFOC-20140602845

PATIENT
  Age: 71 Year
  Sex: Female
  Weight: 52 kg

DRUGS (9)
  1. IBRUVIZA [Suspect]
     Indication: CHRONIC LYMPHOCYTIC LEUKAEMIA
     Dates: start: 20140204, end: 20140218
  2. VALTREX [Concomitant]
     Route: 048
  3. BACTRIM FORTE [Concomitant]
     Route: 048
  4. SYMBICORT [Concomitant]
     Route: 048
  5. SINGULAIR [Concomitant]
     Route: 048
  6. PANTOSIL [Concomitant]
     Route: 048
  7. ZYLORIC [Concomitant]
     Route: 048
  8. CLEXANE [Concomitant]
     Indication: PULMONARY EMBOLISM
     Dates: start: 20140211
  9. DEXANE [Concomitant]

REACTIONS (5)
  - Muscle haemorrhage [Unknown]
  - Pain in extremity [None]
  - Toxicity to various agents [None]
  - Haemoglobin decreased [None]
  - Haematocrit decreased [None]
